FAERS Safety Report 19405318 (Version 1)
Quarter: 2021Q2

REPORT INFORMATION
  Report Type: Spontaneous
  Country: NL (occurrence: NL)
  Receive Date: 20210611
  Receipt Date: 20210611
  Transmission Date: 20210717
  Serious: Yes (Other)
  Sender: FDA-Public Use
  Company Number: NL-TEVA-2021-NL-1920468

PATIENT
  Age: 63 Year
  Sex: Female
  Weight: 60 kg

DRUGS (3)
  1. APIXABAN TABLET 5MG / ELIQUIS TABLET FILMOMHULD 5MG [Concomitant]
     Dosage: 10 MILLIGRAM DAILY; 2X 5MG:THERAPY START DATE :THERAPY END DATE:ASKU
  2. PANTOPRAZOL TABLET MSR 20MG / BRAND NAME NOT SPECIFIED [Suspect]
     Active Substance: PANTOPRAZOLE
     Indication: ABDOMINAL DISCOMFORT
     Dosage: 1X DGS:UNIT DOSE:1DOSAGEFORM
     Dates: start: 20210430, end: 20210515
  3. LEVOTHYROXINE TABLET  88UG (NATRIUM) / EUTHYROX TABLET  88MCG [Concomitant]
     Dosage: 88 MICROGRAM:THERAPY START DATE :THERAPY END DATE:ASKU

REACTIONS (3)
  - Diarrhoea haemorrhagic [Not Recovered/Not Resolved]
  - Gastrointestinal disorder [Not Recovered/Not Resolved]
  - Gastrointestinal pain [Not Recovered/Not Resolved]

NARRATIVE: CASE EVENT DATE: 20210508
